FAERS Safety Report 7432556-9 (Version None)
Quarter: 2011Q2

REPORT INFORMATION
  Report Type: 
  Country: None (occurrence: None)
  Receive Date: 20110422
  Receipt Date: 20110414
  Transmission Date: 20111010
  Serious: Yes (Hospitalization)
  Sender: FDA-Public Use
  Company Number: CA-ELI_LILLY_AND_COMPANY-CA201104004128

PATIENT
  Sex: Male

DRUGS (9)
  1. ZYPREXA [Suspect]
     Dosage: 35 MG, EACH EVENING WITH SUPPER
     Dates: start: 20031110
  2. PAROXETINE HCL [Concomitant]
     Dosage: 20 MG, EACH MORNING
  3. CLOZAPINE [Concomitant]
     Dosage: UNK
     Dates: end: 20051124
  4. ZYPREXA [Suspect]
     Indication: SCHIZOPHRENIA, PARANOID TYPE
     Dosage: 30 MG, EACH EVENING
     Dates: start: 20030902
  5. BUSPIRONE HCL [Concomitant]
     Dosage: 15 MG, QD
  6. FLUANXOL [Concomitant]
  7. RISPERIDONE [Concomitant]
     Dosage: 1 MG, EACH EVENING
  8. CLONAZEPAM [Concomitant]
     Dosage: 0.5 MG, EACH EVENING
  9. ZYPREXA [Suspect]
     Dosage: 40 MG, EACH EVENING WITH SUPPER
     Dates: start: 20040212

REACTIONS (5)
  - OVERDOSE [None]
  - DIABETES MELLITUS [None]
  - HYPERTENSION [None]
  - HYPOAESTHESIA [None]
  - NORMOCHROMIC NORMOCYTIC ANAEMIA [None]
